FAERS Safety Report 22196868 (Version 1)
Quarter: 2023Q2

REPORT INFORMATION
  Report Type: Spontaneous
  Country: US (occurrence: None)
  Receive Date: 20230410
  Receipt Date: 20230410
  Transmission Date: 20230722
  Serious: Yes (Death)
  Sender: FDA-Public Use
  Company Number: None

PATIENT
  Age: 27 Year
  Sex: Female

DRUGS (2)
  1. TACROLIMUS [Suspect]
     Active Substance: TACROLIMUS
     Dosage: FREQUENCY : DAILY;?
     Route: 048
     Dates: start: 20211101, end: 20230213
  2. MYCOPHENOLIC ACID [Suspect]
     Active Substance: MYCOPHENOLIC ACID
     Dosage: FREQUENCY : TWICE A DAY;?
     Route: 048
     Dates: start: 20220203, end: 20230213

REACTIONS (3)
  - Pneumonia [None]
  - Organ failure [None]
  - Complications of transplant surgery [None]

NARRATIVE: CASE EVENT DATE: 20230213
